FAERS Safety Report 7169691-9 (Version None)
Quarter: 2010Q4

REPORT INFORMATION
  Report Type: 
  Country: None (occurrence: None)
  Receive Date: 20101217
  Receipt Date: 20101209
  Transmission Date: 20110411
  Serious: Yes (Other)
  Sender: FDA-Public Use
  Company Number: US-TEVA-250042USA

PATIENT
  Sex: Male

DRUGS (7)
  1. BECLOMETHASONE DIPROPIONATE [Suspect]
     Route: 055
  2. SERETIDE                           /01420901/ [Suspect]
     Indication: ASTHMA
     Dosage: 250/50 MCG (UNKNOWN) AT 1 PUFF(S) TWICE PER DAY.
     Dates: start: 20100708
  3. BUDESONIDE W/FORMOTEROL FUMARATE [Suspect]
  4. PAROXETINE HYDROCHLORIDE [Concomitant]
  5. SALBUTAMOL SULFATE [Concomitant]
  6. SILYBUM MARIANUM [Concomitant]
  7. OMEGA-3 MARINE TRIGLYCERIDES [Concomitant]

REACTIONS (3)
  - APHASIA [None]
  - DYSPNOEA [None]
  - LUNG INFECTION [None]
